FAERS Safety Report 9727165 (Version 1)
Quarter: 2013Q4

REPORT INFORMATION
  Report Type: Spontaneous
  Country: US (occurrence: US)
  Receive Date: 20131203
  Receipt Date: 20131203
  Transmission Date: 20140711
  Serious: No
  Sender: FDA-Public Use
  Company Number: US-BRISTOL-MYERS SQUIBB COMPANY-19216092

PATIENT
  Sex: 0

DRUGS (1)
  1. KOMBIGLYZE XR [Suspect]
     Dosage: INTER ON UNK DATE AND RESTARTED ON UNK DATE

REACTIONS (1)
  - Myalgia [Not Recovered/Not Resolved]
